FAERS Safety Report 16733423 (Version 1)
Quarter: 2019Q3

REPORT INFORMATION
  Report Type: Spontaneous
  Country: NL (occurrence: NL)
  Receive Date: 20190823
  Receipt Date: 20190823
  Transmission Date: 20191005
  Serious: Yes (Hospitalization, Other)
  Sender: FDA-Public Use
  Company Number: NL-AUROBINDO-AUR-APL-2019-055601

PATIENT

DRUGS (8)
  1. DIPYRIDAMOLE. [Concomitant]
     Active Substance: DIPYRIDAMOLE
     Indication: PRODUCT USED FOR UNKNOWN INDICATION
     Dosage: 40 MILLIGRAM
     Route: 065
  2. FENOTEROL;IPRATROPIUM [Concomitant]
     Indication: PRODUCT USED FOR UNKNOWN INDICATION
     Dosage: UNK, PRN
     Route: 065
  3. AMOXICILLIN. [Suspect]
     Active Substance: AMOXICILLIN
     Indication: PRODUCT USED FOR UNKNOWN INDICATION
     Dosage: 1500 MILLIGRAM, ONCE A DAY
     Route: 065
  4. LISINOPRIL. [Concomitant]
     Active Substance: LISINOPRIL
     Indication: PRODUCT USED FOR UNKNOWN INDICATION
     Dosage: 10 MILLIGRAM, ONCE A DAY
     Route: 065
  5. CIPROFLOXACIN. [Suspect]
     Active Substance: CIPROFLOXACIN
     Indication: INFECTION
     Dosage: 150 MILLIGRAM, ONCE A DAY, 28 DAYS
     Route: 065
  6. DEXAMETHASON [Suspect]
     Active Substance: DEXAMETHASONE
     Indication: PRODUCT USED FOR UNKNOWN INDICATION
     Dosage: 10 MILLIGRAM, ONCE A DAY
     Route: 042
  7. CIPROFLOXACIN. [Suspect]
     Active Substance: CIPROFLOXACIN
     Indication: JOINT PROSTHESIS USER
  8. DIPYRIDAMOLE. [Concomitant]
     Active Substance: DIPYRIDAMOLE
     Dosage: 400 MILLIGRAM, ONCE A DAY
     Route: 065

REACTIONS (12)
  - Ascites [Recovered/Resolved]
  - Proteinuria [Recovered/Resolved]
  - Blood urea increased [Recovered/Resolved]
  - Blood creatinine increased [Recovered/Resolved]
  - Malaise [Recovered/Resolved]
  - Anuria [Recovered/Resolved]
  - Diarrhoea [Recovered/Resolved]
  - Hypotension [Recovered/Resolved]
  - Dehydration [Recovered/Resolved]
  - Renal failure [Recovered/Resolved]
  - Abdominal pain [Recovered/Resolved]
  - Tubulointerstitial nephritis [Recovered/Resolved]
